FAERS Safety Report 21396937 (Version 2)
Quarter: 2022Q4

REPORT INFORMATION
  Report Type: Spontaneous
  Country: DK (occurrence: DK)
  Receive Date: 20220930
  Receipt Date: 20221019
  Transmission Date: 20230113
  Serious: Yes (Hospitalization)
  Sender: FDA-Public Use
  Company Number: DK-PFM-2022-07089

PATIENT
  Age: 75 Year
  Sex: Male
  Weight: 90 kg

DRUGS (4)
  1. BRAFTOVI [Suspect]
     Active Substance: ENCORAFENIB
     Indication: Colon cancer
     Dosage: 225 MG, QD (1/DAY)
     Route: 048
     Dates: start: 20220905
  2. BRAFTOVI [Suspect]
     Active Substance: ENCORAFENIB
     Dosage: 300 MG, DAILY
     Route: 065
  3. BRAFTOVI [Suspect]
     Active Substance: ENCORAFENIB
     Dosage: 225 MG, DAILY
     Route: 065
     Dates: start: 20220914, end: 20220919
  4. CETUXIMAB [Concomitant]
     Active Substance: CETUXIMAB
     Indication: Colon cancer
     Dosage: 500 MG/M2 (1045 MG), DAILY (DAY 1 ON 05SEP2022 AND DAY 15 ON 19SEP2022)
     Route: 042
     Dates: start: 20220905, end: 20220919

REACTIONS (7)
  - Pallor [Not Recovered/Not Resolved]
  - Fatigue [Not Recovered/Not Resolved]
  - Asthenia [Not Recovered/Not Resolved]
  - Anaemia [Unknown]
  - Decreased appetite [Unknown]
  - Inflammatory marker increased [Unknown]
  - Abdominal pain [Unknown]

NARRATIVE: CASE EVENT DATE: 20220920
